FAERS Safety Report 8282084-6 (Version None)
Quarter: 2012Q2

REPORT INFORMATION
  Report Type: 
  Country: None (occurrence: None)
  Receive Date: 20120413
  Receipt Date: 20120404
  Transmission Date: 20120825
  Serious: Yes (Hospitalization)
  Sender: FDA-Public Use
  Company Number: US-ASTRAZENECA-2012SE22386

PATIENT
  Sex: Female

DRUGS (4)
  1. ZOCOR [Concomitant]
     Indication: CARDIOVASCULAR DISORDER
  2. PRILOSEC [Suspect]
     Indication: GASTROOESOPHAGEAL REFLUX DISEASE
     Route: 048
  3. COZAAR [Concomitant]
  4. NEXIUM [Suspect]
     Indication: GASTROOESOPHAGEAL REFLUX DISEASE
     Route: 048

REACTIONS (6)
  - GASTROOESOPHAGEAL REFLUX DISEASE [None]
  - ERUCTATION [None]
  - CARDIAC INFECTION [None]
  - HICCUPS [None]
  - DRUG EFFECT DECREASED [None]
  - PNEUMONIA [None]
